FAERS Safety Report 23140508 (Version 1)
Quarter: 2023Q4

REPORT INFORMATION
  Report Type: Spontaneous
  Country: CA (occurrence: US)
  Receive Date: 20231102
  Receipt Date: 20231102
  Transmission Date: 20240110
  Serious: No
  Sender: FDA-Public Use
  Company Number: CA-SANDOZ-SDZ2023US008183

PATIENT
  Sex: Female
  Weight: 75 kg

DRUGS (1)
  1. METHOTREXATE [Suspect]
     Active Substance: METHOTREXATE
     Indication: Psoriatic arthropathy
     Route: 065

REACTIONS (5)
  - Drug ineffective [Unknown]
  - Cough [Unknown]
  - Psoriasis [Unknown]
  - Tendonitis [Unknown]
  - Muscular weakness [Unknown]
